FAERS Safety Report 5219855-6 (Version None)
Quarter: 2007Q1

REPORT INFORMATION
  Report Type: 
  Country: None (occurrence: None)
  Receive Date: 20070125
  Receipt Date: 20060810
  Transmission Date: 20070707
  Serious: Yes (Hospitalization)
  Sender: FDA-Public Use
  Company Number: DE-PFIZER INC-2007004762

PATIENT
  Sex: Female
  Weight: 92 kg

DRUGS (7)
  1. AROMASIN [Suspect]
     Indication: BREAST CANCER
     Route: 048
     Dates: start: 20040226, end: 20041115
  2. THYROXIN [Concomitant]
     Indication: HYPOTHYROIDISM
  3. BISOPROLOL FUMARATE [Concomitant]
     Indication: HYPERTENSION
  4. ASPIRIN [Concomitant]
     Indication: MYOCARDIAL INFARCTION
     Dates: start: 19930101
  5. VALSARTAN AND HYDROCHLOROTHIAZIDE [Concomitant]
     Indication: HYPERTENSION
  6. ISOSORBIDE MONONITRATE [Concomitant]
     Indication: MYOCARDIAL INFARCTION
     Dates: start: 19930101
  7. PHYSIOTENS [Concomitant]

REACTIONS (1)
  - ENDOMETRIAL HYPERTROPHY [None]
